FAERS Safety Report 5259976-5 (Version None)
Quarter: 2007Q1

REPORT INFORMATION
  Report Type: 
  Country: None (occurrence: None)
  Receive Date: 20070309
  Receipt Date: 20060116
  Transmission Date: 20070707
  Serious: Yes (Other)
  Sender: FDA-Public Use
  Company Number: US-GLAXOSMITHKLINE-A0589188A

PATIENT
  Age: 42 Year
  Sex: Male

DRUGS (2)
  1. NICORETTE (MINT) [Suspect]
     Indication: TOBACCO USER
     Dates: start: 20051201
  2. NICORETTE [Suspect]
     Indication: TOBACCO USER
     Dates: start: 20050901, end: 20051201

REACTIONS (1)
  - DRUG ABUSER [None]
